FAERS Safety Report 20901612 (Version 3)
Quarter: 2022Q3

REPORT INFORMATION
  Report Type: Spontaneous
  Country: US (occurrence: US)
  Receive Date: 20220601
  Receipt Date: 20220906
  Transmission Date: 20221027
  Serious: No
  Sender: FDA-Public Use
  Company Number: US-PFIZER INC-202200766110

PATIENT
  Age: 74 Year
  Sex: Female

DRUGS (3)
  1. NALBUPHINE HYDROCHLORIDE [Suspect]
     Active Substance: NALBUPHINE HYDROCHLORIDE
     Indication: Fibromyalgia
     Dosage: 1 ML, 4X/DAY
  2. NALBUPHINE HYDROCHLORIDE [Suspect]
     Active Substance: NALBUPHINE HYDROCHLORIDE
     Indication: Nerve injury
     Dosage: 20 MG
  3. NALBUPHINE HYDROCHLORIDE [Suspect]
     Active Substance: NALBUPHINE HYDROCHLORIDE
     Indication: Pain

REACTIONS (3)
  - Osteoporosis [Unknown]
  - Arthritis [Unknown]
  - Scoliosis [Unknown]
